FAERS Safety Report 5319445-0 (Version None)
Quarter: 2007Q2

REPORT INFORMATION
  Report Type: 
  Country: None (occurrence: None)
  Receive Date: 20070508
  Receipt Date: 20070424
  Transmission Date: 20071010
  Serious: Yes (Hospitalization)
  Sender: FDA-Public Use
  Company Number: ES-ELI_LILLY_AND_COMPANY-ES200705001848

PATIENT
  Age: 58 Year
  Sex: Female

DRUGS (5)
  1. FORTEO [Suspect]
     Indication: OSTEOPOROSIS
     Dosage: 20 UG, DAILY (1/D)
     Route: 058
     Dates: start: 20060501
  2. CORTICOSTEROIDS [Concomitant]
  3. URBASON                                 /GFR/ [Concomitant]
  4. AIRTAL [Concomitant]
  5. CALCIUM CHLORIDE [Concomitant]

REACTIONS (2)
  - PYREXIA [None]
  - TRANSAMINASES INCREASED [None]
